FAERS Safety Report 24777463 (Version 5)
Quarter: 2025Q1

REPORT INFORMATION
  Report Type: Spontaneous
  Country: US (occurrence: US)
  Receive Date: 20241226
  Receipt Date: 20250305
  Transmission Date: 20250409
  Serious: No
  Sender: PFIZER
  Company Number: US-PFIZER INC-202400325937

PATIENT
  Age: 56 Year
  Sex: Female
  Weight: 68.04 kg

DRUGS (1)
  1. HYDROMORPHONE HYDROCHLORIDE [Suspect]
     Active Substance: HYDROMORPHONE HYDROCHLORIDE
     Indication: Pain
     Dosage: INJECT 4 TO 8 MILLIGRAMS PER MILLILITER INTO THE MUSCLE EVERY 6-8 HOURS(DAILY)

REACTIONS (4)
  - Product prescribing issue [Unknown]
  - Device mechanical issue [Unknown]
  - Device breakage [Unknown]
  - Device use issue [Unknown]
